FAERS Safety Report 6112695-5 (Version None)
Quarter: 2009Q1

REPORT INFORMATION
  Report Type: 
  Country: None (occurrence: None)
  Receive Date: 20090312
  Receipt Date: 20090303
  Transmission Date: 20090719
  Serious: Yes (Hospitalization)
  Sender: FDA-Public Use
  Company Number: TW-PFIZER INC-2009173105

PATIENT

DRUGS (4)
  1. BLINDED *PLACEBO [Suspect]
     Indication: NON-SMALL CELL LUNG CANCER
     Dosage: 25 MG, 1X/DAY
     Route: 048
     Dates: start: 20080702, end: 20090120
  2. BLINDED SUNITINIB MALATE [Suspect]
     Indication: NON-SMALL CELL LUNG CANCER
     Dosage: 25 MG, 1X/DAY
     Route: 048
     Dates: start: 20080702, end: 20090120
  3. *ERLOTINIB [Suspect]
     Indication: NON-SMALL CELL LUNG CANCER
     Dosage: 100 MG, 1X/DAY
     Route: 048
     Dates: start: 20080702, end: 20090120
  4. TRICHLORMETHIAZIDE [Concomitant]
     Indication: OEDEMA PERIPHERAL
     Dosage: 2 MG, 1X/DAY
     Route: 048
     Dates: start: 20090121, end: 20090217

REACTIONS (1)
  - ISCHAEMIC STROKE [None]
